FAERS Safety Report 14039562 (Version 2)
Quarter: 2017Q4

REPORT INFORMATION
  Report Type: Spontaneous
  Country: EC (occurrence: EC)
  Receive Date: 20171004
  Receipt Date: 20171018
  Transmission Date: 20180321
  Serious: Yes (Other)
  Sender: FDA-Public Use
  Company Number: EC-PFIZER INC-2017427529

PATIENT
  Age: 25 Year

DRUGS (3)
  1. XILOCAINA /00033401/ [Concomitant]
     Active Substance: LIDOCAINE
     Indication: MUSCLE CONTRACTURE
     Dosage: UNK
  2. ARCOXIA [Concomitant]
     Active Substance: ETORICOXIB
     Indication: MUSCLE CONTRACTURE
     Dosage: UNK
  3. DEPO-MEDROL [Suspect]
     Active Substance: METHYLPREDNISOLONE ACETATE
     Indication: MUSCLE CONTRACTURE
     Dosage: UNK

REACTIONS (3)
  - Epiglottitis [Unknown]
  - Product use in unapproved indication [Unknown]
  - Bronchospasm [Unknown]
